FAERS Safety Report 8972347 (Version 1)
Quarter: 2012Q4

REPORT INFORMATION
  Report Type: 
  Country: US (occurrence: US)
  Receive Date: 20121219
  Receipt Date: 20121219
  Transmission Date: 20130627
  Serious: No
  Sender: FDA-Public Use
  Company Number: US-MYLANLABS-2011S1026255

PATIENT
  Age: 39 Year
  Sex: Female
  Weight: 53.07 kg

DRUGS (2)
  1. DILTIAZEM HYDROCHLORIDE [Suspect]
     Indication: BLOOD PRESSURE INCREASED
     Route: 048
     Dates: start: 20111203, end: 20111213
  2. PRILOSEC [Concomitant]
     Indication: GASTRIC ULCER

REACTIONS (2)
  - Haemorrhoidal haemorrhage [Recovered/Resolved]
  - Constipation [Recovered/Resolved]
